FAERS Safety Report 7951467-3 (Version None)
Quarter: 2011Q4

REPORT INFORMATION
  Report Type: 
  Country: None (occurrence: None)
  Receive Date: 20111201
  Receipt Date: 20111121
  Transmission Date: 20120403
  Serious: Yes (Hospitalization)
  Sender: FDA-Public Use
  Company Number: US-BAYER-2011-011270

PATIENT
  Age: 22 Year
  Sex: Female
  Weight: 66 kg

DRUGS (13)
  1. YASMIN [Suspect]
     Indication: MENSTRUAL CYCLE MANAGEMENT
  2. HYDROCODONE [Concomitant]
     Dosage: UNK
     Dates: start: 20070219, end: 20070224
  3. DETROL LA [Concomitant]
     Dosage: UNK
     Dates: start: 20070201
  4. LEXAPRO [Concomitant]
     Dosage: UNK
     Dates: start: 20060809, end: 20061223
  5. PROMETHAZINE [Concomitant]
     Dosage: UNK
     Dates: start: 20070227, end: 20070302
  6. PHENAZOPYRIDINE HCL TAB [Concomitant]
     Dosage: UNK
     Dates: start: 20070217, end: 20070220
  7. PROPOXYPHENE HYDROCHLORIDE [Concomitant]
     Dosage: UNK
     Dates: start: 20070224, end: 20070307
  8. DARVOCET [Concomitant]
     Indication: BACK PAIN
  9. YASMIN [Suspect]
     Indication: CONTRACEPTION
     Dosage: UNK
     Route: 048
     Dates: start: 20021101, end: 20070501
  10. CIPROFLOXACIN [Concomitant]
     Dosage: UNK
     Dates: start: 20061206, end: 20070224
  11. YASMIN [Suspect]
     Indication: ACNE
  12. YASMIN [Suspect]
     Indication: PREMENSTRUAL SYNDROME
  13. PHENAZOPYRIDINE HCL TAB [Concomitant]
     Indication: URINARY TRACT INFECTION

REACTIONS (3)
  - CHOLECYSTITIS CHRONIC [None]
  - ABDOMINAL PAIN [None]
  - CHOLELITHIASIS [None]
